FAERS Safety Report 13418615 (Version 1)
Quarter: 2017Q2

REPORT INFORMATION
  Report Type: Spontaneous
  Country: FR (occurrence: FR)
  Receive Date: 20170406
  Receipt Date: 20170406
  Transmission Date: 20170830
  Serious: Yes (Hospitalization)
  Sender: FDA-Public Use
  Company Number: PHHY2017FR049223

PATIENT
  Age: 72 Year
  Sex: Male

DRUGS (2)
  1. SINEMET [Suspect]
     Active Substance: CARBIDOPA\LEVODOPA
     Indication: PROGRESSIVE SUPRANUCLEAR PALSY
     Dosage: 4 DF, QD
     Route: 048
     Dates: start: 201609
  2. STALEVO [Suspect]
     Active Substance: CARBIDOPA\ENTACAPONE\LEVODOPA
     Indication: PROGRESSIVE SUPRANUCLEAR PALSY
     Dosage: 4 DF, QD
     Route: 048
     Dates: start: 201609

REACTIONS (2)
  - Frontotemporal dementia [Unknown]
  - Compulsive sexual behaviour [Unknown]

NARRATIVE: CASE EVENT DATE: 201701
